FAERS Safety Report 7513474-4 (Version None)
Quarter: 2011Q2

REPORT INFORMATION
  Report Type: 
  Country: None (occurrence: None)
  Receive Date: 20110531
  Receipt Date: 20110525
  Transmission Date: 20111010
  Serious: Yes (Hospitalization)
  Sender: FDA-Public Use
  Company Number: JP-B.I. PHARMACEUTICALS,INC./RIDGEFIELD-2011-BP-14012NB

PATIENT
  Age: 87 Year
  Sex: Female

DRUGS (7)
  1. ARICEPT [Suspect]
     Indication: DEMENTIA ALZHEIMER'S TYPE
     Dosage: 5 MG
     Route: 048
  2. BONOTEO [Concomitant]
     Indication: OSTEOPOROSIS
     Dosage: 1 MG
     Route: 048
     Dates: start: 20100721
  3. OLMESARTAN MEDOXOMIL [Concomitant]
     Indication: ESSENTIAL HYPERTENSION
     Dosage: 20 MG
     Route: 048
  4. ATELEC [Concomitant]
     Indication: ESSENTIAL HYPERTENSION
     Dosage: 5 MG
     Route: 048
  5. PRADAXA [Suspect]
     Indication: ATRIAL FIBRILLATION
     Dosage: 220 MG
     Route: 048
     Dates: start: 20110518, end: 20110523
  6. ARICEPT [Suspect]
     Dosage: 10 MG
     Route: 048
     Dates: start: 20110518, end: 20110523
  7. LOCHOLEST [Concomitant]
     Indication: DYSLIPIDAEMIA
     Dosage: 20 MG
     Route: 048
     Dates: start: 20071228

REACTIONS (2)
  - MALAISE [None]
  - DECREASED APPETITE [None]
